FAERS Safety Report 14112507 (Version 1)
Quarter: 2017Q4

REPORT INFORMATION
  Report Type: Spontaneous
  Country: US (occurrence: US)
  Receive Date: 20171020
  Receipt Date: 20171020
  Transmission Date: 20180321
  Serious: No
  Sender: FDA-Public Use
  Company Number: US-TEIKOKU PHARMA USA-TPU2017-00621

PATIENT
  Sex: Female
  Weight: 81.72 kg

DRUGS (1)
  1. LIDOCAINE PATCH [Suspect]
     Active Substance: LIDOCAINE
     Indication: POST HERPETIC NEURALGIA
     Dosage: 1 PATCH APPPLIED FOR 12 HOURS, REMOVED, THEN A SECOND PATCH APPLIED FOR THE REMAINING 12 HOURS OF 24
     Route: 061
     Dates: start: 201709

REACTIONS (1)
  - Inappropriate schedule of drug administration [Unknown]
